FAERS Safety Report 6013943-2 (Version None)
Quarter: 2008Q4

REPORT INFORMATION
  Report Type: 
  Country: None (occurrence: None)
  Receive Date: 20081219
  Receipt Date: 20081215
  Transmission Date: 20090506
  Serious: Yes (Hospitalization)
  Sender: FDA-Public Use
  Company Number: AU-MERCK-0812AUS00244

PATIENT
  Age: 75 Year
  Sex: Male

DRUGS (8)
  1. ZOCOR [Suspect]
     Route: 048
     Dates: end: 20080227
  2. DARBEPOETIN ALFA [Concomitant]
     Route: 065
  3. ASPIRIN [Concomitant]
     Route: 065
  4. CALCITRIOL [Concomitant]
     Route: 065
  5. CALCIUM POLYSTYRENE SULFONATE [Concomitant]
     Route: 065
  6. FUROSEMIDE [Concomitant]
     Route: 065
  7. ALLOPURINOL [Concomitant]
     Route: 065
  8. SODIUM BICARBONATE [Concomitant]
     Route: 065

REACTIONS (5)
  - BLOOD CREATINE PHOSPHOKINASE INCREASED [None]
  - EXERCISE TOLERANCE DECREASED [None]
  - MUSCLE SPASMS [None]
  - MYOSITIS [None]
  - RHABDOMYOLYSIS [None]
